FAERS Safety Report 5169464-2 (Version None)
Quarter: 2006Q4

REPORT INFORMATION
  Report Type: 
  Country: None (occurrence: None)
  Receive Date: 20061211
  Receipt Date: 20061205
  Transmission Date: 20070319
  Serious: Yes (Hospitalization)
  Sender: FDA-Public Use
  Company Number: GB-BOEHRINGER INGELHEIM PHARMACEUTICALS, INC.-2006-DE-06466GD

PATIENT
  Age: 37 Year
  Sex: Female

DRUGS (5)
  1. PRAMIPEXOLE DIHYDROCHLORIDE [Suspect]
     Indication: TREMOR
  2. AMANTADINE HCL [Suspect]
  3. MIRTAZAPINE [Suspect]
  4. FUROSEMIDE [Concomitant]
  5. TIZANIDINE HCL [Concomitant]

REACTIONS (7)
  - AGGRESSION [None]
  - CONDITION AGGRAVATED [None]
  - HALLUCINATION, AUDITORY [None]
  - HALLUCINATION, VISUAL [None]
  - JEALOUS DELUSION [None]
  - PSYCHOTIC DISORDER [None]
  - TREMOR [None]
